FAERS Safety Report 8807869 (Version 1)
Quarter: 2012Q4

REPORT INFORMATION
  Report Type: 
  Country: IT (occurrence: IT)
  Receive Date: 20120925
  Receipt Date: 20120925
  Transmission Date: 20130627
  Serious: Yes (Hospitalization)
  Sender: FDA-Public Use
  Company Number: IT-GLAXOSMITHKLINE-B0832835A

PATIENT
  Age: 47 Year
  Sex: Female

DRUGS (5)
  1. SEREUPIN [Suspect]
     Indication: PRODUCT USED FOR UNKNOWN INDICATION
     Dosage: 20MG per day
     Route: 048
     Dates: start: 20120618, end: 20120618
  2. RISPERDAL [Suspect]
     Indication: PRODUCT USED FOR UNKNOWN INDICATION
     Dosage: 3ML per day
     Route: 048
     Dates: start: 20120618, end: 20120618
  3. TROSPIUM CHLORIDE [Suspect]
     Dosage: 80MG per day
     Route: 048
     Dates: start: 20120618, end: 20120618
  4. SEROQUEL [Suspect]
     Indication: PRODUCT USED FOR UNKNOWN INDICATION
     Dosage: 25MG per day
     Route: 048
     Dates: start: 20120618, end: 20120618
  5. KETOPROFEN [Suspect]
     Indication: PRODUCT USED FOR UNKNOWN INDICATION
     Dosage: 200MG per day
     Route: 048
     Dates: start: 20120618, end: 20120618

REACTIONS (2)
  - Self injurious behaviour [Unknown]
  - Overdose [Unknown]
